FAERS Safety Report 10188189 (Version 1)
Quarter: 2014Q2

REPORT INFORMATION
  Report Type: Spontaneous
  Country: US (occurrence: US)
  Receive Date: 20140522
  Receipt Date: 20140522
  Transmission Date: 20141212
  Serious: Yes (Other)
  Sender: FDA-Public Use
  Company Number: US-PFIZER INC-2014140165

PATIENT
  Age: 78 Year
  Sex: Male
  Weight: 99.77 kg

DRUGS (5)
  1. TIKOSYN [Suspect]
     Dosage: 500 UG, 2X/DAY
     Route: 048
     Dates: start: 2013
  2. SYMBICORT [Suspect]
     Indication: CHRONIC OBSTRUCTIVE PULMONARY DISEASE
     Dosage: UNK, 2X/DAY
     Dates: end: 20140514
  3. SYMBICORT [Suspect]
     Indication: ASTHMA
  4. SPIRIVA [Concomitant]
     Indication: ASTHMA
     Dosage: UNK
  5. SPIRIVA [Concomitant]
     Indication: CHRONIC OBSTRUCTIVE PULMONARY DISEASE

REACTIONS (2)
  - Upper respiratory fungal infection [Unknown]
  - Hypotension [Unknown]
